FAERS Safety Report 5149922-7 (Version None)
Quarter: 2006Q4

REPORT INFORMATION
  Report Type: 
  Country: None (occurrence: None)
  Receive Date: 20061113
  Receipt Date: 20061107
  Transmission Date: 20070319
  Serious: Yes (Hospitalization)
  Sender: FDA-Public Use
  Company Number: DE-ROXANE LABORATORIES, INC-2006-BP-12990RO

PATIENT
  Age: 44 Year
  Sex: Female

DRUGS (3)
  1. METOCLOPRAMIDE [Suspect]
     Indication: NAUSEA
     Dosage: 10 MG X 1 DOSE
     Route: 042
  2. BUTYLSCOPOLAMINE [Suspect]
     Indication: NAUSEA
     Dosage: 20 MG X 1 DOSE
     Route: 042
  3. TALVOSILEN [Suspect]
     Indication: ABDOMINAL PAIN UPPER
     Dosage: (ACETAMINOPHEN 500 MG W/CODEINE PHOSPHATE 20 MG)
     Route: 048

REACTIONS (9)
  - ABDOMINAL PAIN [None]
  - ANAPHYLACTIC REACTION [None]
  - HYPERSENSITIVITY [None]
  - HYPOTENSION [None]
  - LOSS OF CONSCIOUSNESS [None]
  - NAUSEA [None]
  - PRURITUS [None]
  - URTICARIA [None]
  - VOMITING [None]
